FAERS Safety Report 7328835-6 (Version None)
Quarter: 2011Q1

REPORT INFORMATION
  Report Type: 
  Country: None (occurrence: None)
  Receive Date: 20110303
  Receipt Date: 20110228
  Transmission Date: 20110831
  Serious: Yes (Other)
  Sender: FDA-Public Use
  Company Number: NL-ROCHE-760453

PATIENT
  Sex: Male

DRUGS (4)
  1. MIRCERA [Suspect]
     Route: 042
     Dates: start: 20100906, end: 20100927
  2. MIRCERA [Suspect]
     Route: 042
     Dates: start: 20101103, end: 20110202
  3. MIRCERA [Suspect]
     Route: 042
     Dates: start: 20100927, end: 20101103
  4. MIRCERA [Suspect]
     Route: 042
     Dates: start: 20110202, end: 20110228

REACTIONS (1)
  - APLASIA PURE RED CELL [None]
